FAERS Safety Report 5144055-8 (Version None)
Quarter: 2006Q4

REPORT INFORMATION
  Report Type: 
  Country: None (occurrence: None)
  Receive Date: 20061106
  Receipt Date: 20061031
  Transmission Date: 20070319
  Serious: Yes (Other)
  Sender: FDA-Public Use
  Company Number: US-GLAXOSMITHKLINE-A0625657A

PATIENT
  Sex: Female

DRUGS (2)
  1. WELLBUTRIN XL [Suspect]
     Indication: DRUG USE FOR UNKNOWN INDICATION
     Dosage: 150MG UNKNOWN
     Route: 065
  2. CYMBALTA [Suspect]
     Indication: DRUG USE FOR UNKNOWN INDICATION
     Dosage: 90MG UNKNOWN
     Route: 065

REACTIONS (18)
  - ANHEDONIA [None]
  - ANXIETY [None]
  - ARTHRITIS [None]
  - ASTHENIA [None]
  - DEPRESSED MOOD [None]
  - DEPRESSION [None]
  - DIABETES MELLITUS [None]
  - DRUG INEFFECTIVE [None]
  - EATING DISORDER [None]
  - FEELING OF DESPAIR [None]
  - FIBROMYALGIA [None]
  - INSOMNIA [None]
  - IRRITABILITY [None]
  - PAIN [None]
  - SYSTEMIC LUPUS ERYTHEMATOSUS [None]
  - THYROID DISORDER [None]
  - VENOUS INSUFFICIENCY [None]
  - WEIGHT LOSS POOR [None]
